FAERS Safety Report 13996652 (Version 1)
Quarter: 2017Q3

REPORT INFORMATION
  Report Type: Spontaneous
  Country: US (occurrence: US)
  Receive Date: 20170921
  Receipt Date: 20170921
  Transmission Date: 20171128
  Serious: No
  Sender: FDA-Public Use
  Company Number: US-ALLERGAN-1726255US

PATIENT
  Age: 65 Year
  Sex: Male

DRUGS (4)
  1. IMODIUM [Concomitant]
     Active Substance: LOPERAMIDE HYDROCHLORIDE
     Indication: IRRITABLE BOWEL SYNDROME
     Dosage: 2 TABLETS WITH MEALS, QD
     Route: 048
  2. METAMUCIL [Concomitant]
     Active Substance: PLANTAGO SEED
     Indication: IRRITABLE BOWEL SYNDROME
     Dosage: UNK, PRN
     Route: 048
  3. VIBERZI [Suspect]
     Active Substance: ELUXADOLINE
     Indication: IRRITABLE BOWEL SYNDROME
     Dosage: 100 MG, UNK
     Route: 048
     Dates: start: 20170401
  4. ALIGN [Concomitant]
     Active Substance: BIFIDOBACTERIUM LONGUM SUBSP. INFANTIS
     Indication: IRRITABLE BOWEL SYNDROME
     Dosage: UNK, PRN
     Route: 048

REACTIONS (3)
  - Faeces soft [Recovering/Resolving]
  - Drug ineffective [Unknown]
  - Product use issue [Unknown]

NARRATIVE: CASE EVENT DATE: 2017
